FAERS Safety Report 5042348-6 (Version None)
Quarter: 2006Q3

REPORT INFORMATION
  Report Type: 
  Country: None (occurrence: None)
  Receive Date: 20060705
  Receipt Date: 20060518
  Transmission Date: 20061208
  Serious: Yes (Hospitalization)
  Sender: FDA-Public Use
  Company Number: PHBS2006IE07485

PATIENT
  Age: 78 Year
  Sex: Female

DRUGS (6)
  1. ELTROXIN [Concomitant]
     Dosage: 100 MG, QD
  2. NSA [Concomitant]
     Dosage: 75 MG, QD
  3. ESOMEPRAZOLE [Concomitant]
     Dosage: 40 MG, QD
  4. SERC [Concomitant]
     Dosage: 8 MG, TID
  5. CENTYL K [Concomitant]
  6. CO-DIOVAN [Suspect]
     Indication: HYPERTENSION
     Dosage: VALS 80 / HCT 12.5 MG/DAY
     Route: 048
     Dates: start: 20060207

REACTIONS (4)
  - CIRCULATORY COLLAPSE [None]
  - NUCLEAR MAGNETIC RESONANCE IMAGING ABNORMAL [None]
  - SYNCOPE [None]
  - VERTIGO POSITIONAL [None]
